FAERS Safety Report 25270947 (Version 1)
Quarter: 2025Q2

REPORT INFORMATION
  Report Type: Spontaneous
  Country: CA (occurrence: CA)
  Receive Date: 20250506
  Receipt Date: 20250506
  Transmission Date: 20250717
  Serious: Yes (Hospitalization, Other)
  Sender: CHEPLAPHARM
  Company Number: None

PATIENT
  Age: 57 Year
  Sex: Male

DRUGS (8)
  1. QUETIAPINE [Suspect]
     Active Substance: QUETIAPINE
     Dosage: DAILY DOSE: 400 MILLIGRAM
  2. CITALOPRAM [Suspect]
     Active Substance: CITALOPRAM
     Dosage: DAILY DOSE: 40 MILLIGRAM
  3. ARIPIPRAZOLE [Suspect]
     Active Substance: ARIPIPRAZOLE
     Dosage: DAILY DOSE: 10 MILLIGRAM
  4. DULOXETINE [Suspect]
     Active Substance: DULOXETINE
     Dosage: DAILY DOSE: 120 MILLIGRAM
  5. ZOPICLONE [Suspect]
     Active Substance: ZOPICLONE
     Dosage: DAILY DOSE: 7.5 MILLIGRAM
  6. MIRTAZAPINE [Suspect]
     Active Substance: MIRTAZAPINE
     Dosage: DAILY DOSE: 30 MILLIGRAM
  7. BUPRENORPHINE\NALOXONE [Suspect]
     Active Substance: BUPRENORPHINE\NALOXONE
     Indication: Back pain
  8. DONEPEZIL [Suspect]
     Active Substance: DONEPEZIL
     Dosage: DAILY DOSE: 10 MILLIGRAM

REACTIONS (7)
  - Dementia [Recovered/Resolved]
  - Delirium [Recovering/Resolving]
  - Acute kidney injury [Recovering/Resolving]
  - Rhabdomyolysis [Recovering/Resolving]
  - Substance abuse [Unknown]
  - Gait disturbance [Unknown]
  - Somnolence [Unknown]
